FAERS Safety Report 10207848 (Version 1)
Quarter: 2014Q2

REPORT INFORMATION
  Report Type: Spontaneous
  Country: AU (occurrence: None)
  Receive Date: 20140527
  Receipt Date: 20140527
  Transmission Date: 20141212
  Serious: Yes (Other)
  Sender: FDA-Public Use
  Company Number: ABR_01661_2014

PATIENT
  Age: 45 Year
  Sex: Male

DRUGS (1)
  1. AMPHETAMINE [Suspect]
     Indication: PRODUCT USED FOR UNKNOWN INDICATION
     Dosage: DF

REACTIONS (5)
  - Penile abscess [None]
  - Penile necrosis [None]
  - Penile vein thrombosis [None]
  - Bacterial infection [None]
  - Intentional product misuse [None]
